FAERS Safety Report 13366541 (Version 2)
Quarter: 2017Q2

REPORT INFORMATION
  Report Type: Other
  Country: GB (occurrence: GB)
  Receive Date: 20170323
  Receipt Date: 20170418
  Transmission Date: 20170830
  Serious: Yes (Other)
  Sender: FDA-Public Use
  Company Number: GB-TAKEDA-2017TEU001224

PATIENT
  Age: 52 Year
  Sex: Female
  Weight: 67 kg

DRUGS (5)
  1. ALOGLIPTIN. [Suspect]
     Active Substance: ALOGLIPTIN
     Indication: BLOOD GLUCOSE INCREASED
  2. FERROUS FUMARATE [Concomitant]
     Active Substance: FERROUS FUMARATE
     Dosage: UNK UNK, QD
     Dates: start: 20161107
  3. METFORMIN [Concomitant]
     Active Substance: METFORMIN HYDROCHLORIDE
     Indication: BLOOD GLUCOSE INCREASED
     Dosage: 1 G, BID
     Dates: start: 20161107
  4. ALOGLIPTIN. [Suspect]
     Active Substance: ALOGLIPTIN
     Indication: TYPE 2 DIABETES MELLITUS
     Dosage: 25 MG, UNK
     Route: 048
     Dates: start: 20170227, end: 20170310
  5. AMLODIPINE [Concomitant]
     Active Substance: AMLODIPINE BESYLATE
     Dosage: 5 MG, QD
     Dates: start: 20161107

REACTIONS (14)
  - Skin lesion [Recovered/Resolved with Sequelae]
  - Fatigue [Recovered/Resolved]
  - Eye discharge [Recovered/Resolved]
  - Malaise [Recovered/Resolved]
  - Lacrimation increased [Recovered/Resolved]
  - Stomatitis [Recovered/Resolved]
  - Eye pain [Recovered/Resolved]
  - Swelling face [Recovered/Resolved]
  - Foreign body sensation in eyes [Recovered/Resolved]
  - Rash erythematous [Recovering/Resolving]
  - Eye swelling [Recovered/Resolved]
  - Decreased appetite [Recovered/Resolved]
  - Eye pain [Recovering/Resolving]
  - Pruritus [Recovering/Resolving]

NARRATIVE: CASE EVENT DATE: 20170307
